FAERS Safety Report 8324957-1 (Version None)
Quarter: 2012Q2

REPORT INFORMATION
  Report Type: 
  Country: None (occurrence: None)
  Receive Date: 20120501
  Receipt Date: 20120417
  Transmission Date: 20120825
  Serious: Yes (Other)
  Sender: FDA-Public Use
  Company Number: GB-MYLANLABS-2012S1008205

PATIENT
  Sex: Male

DRUGS (2)
  1. BACLOFEN [Suspect]
     Indication: ALCOHOLISM
     Dosage: INCREASED BY 30MG DAILY EVERY WEEK UNTIL REACHING 150MG DAILY
     Route: 048
  2. BACLOFEN [Suspect]
     Route: 048

REACTIONS (8)
  - MUSCLE SPASMS [None]
  - SUICIDAL IDEATION [None]
  - VISION BLURRED [None]
  - NIGHTMARE [None]
  - WITHDRAWAL SYNDROME [None]
  - COLOUR BLINDNESS [None]
  - SOMNOLENCE [None]
  - PARANOIA [None]
